FAERS Safety Report 9685969 (Version 1)
Quarter: 2013Q4

REPORT INFORMATION
  Report Type: Spontaneous
  Country: US (occurrence: US)
  Receive Date: 20131113
  Receipt Date: 20131113
  Transmission Date: 20140711
  Serious: No
  Sender: FDA-Public Use
  Company Number: US-ALLERGAN-1308644US

PATIENT
  Age: 79 Year
  Sex: Female

DRUGS (2)
  1. COMBIGAN[R] [Suspect]
     Indication: GLAUCOMA
     Dosage: 1 GTT, BID
     Route: 047
     Dates: start: 201212
  2. TRAVATAN [Concomitant]
     Indication: GLAUCOMA
     Dosage: 1 GTT, QHS
     Route: 047

REACTIONS (4)
  - Eye pruritus [Unknown]
  - Eye irritation [Unknown]
  - Erythema of eyelid [Unknown]
  - Eye discharge [Unknown]
